FAERS Safety Report 6577529-3 (Version None)
Quarter: 2010Q1

REPORT INFORMATION
  Report Type: 
  Country: None (occurrence: None)
  Receive Date: 20100211
  Receipt Date: 20100203
  Transmission Date: 20100710
  Serious: Yes (Other)
  Sender: FDA-Public Use
  Company Number: GB-ASTRAZENECA-2010SE04923

PATIENT
  Age: 17 Year
  Sex: Male
  Weight: 73 kg

DRUGS (2)
  1. QUETIAPINE [Suspect]
     Indication: SCHIZOPHRENIA
     Route: 048
     Dates: start: 20070824
  2. RISPERDAL CONSTA [Concomitant]
     Indication: SCHIZOPHRENIA
     Route: 030
     Dates: start: 20060201, end: 20070823

REACTIONS (5)
  - BLOOD GLUCOSE FLUCTUATION [None]
  - COLD SWEAT [None]
  - FEELING COLD [None]
  - HYPERGLYCAEMIA [None]
  - HYPERHIDROSIS [None]
